FAERS Safety Report 6542971-3 (Version None)
Quarter: 2010Q1

REPORT INFORMATION
  Report Type: 
  Country: None (occurrence: None)
  Receive Date: 20100120
  Receipt Date: 20100114
  Transmission Date: 20100710
  Serious: Yes (Death, Other)
  Sender: FDA-Public Use
  Company Number: US-ROCHE-623931

PATIENT
  Sex: Male
  Weight: 68 kg

DRUGS (1)
  1. CAPECITABINE [Suspect]
     Indication: COLORECTAL CANCER
     Dosage: DOSE: 1500 MG AM/PM
     Route: 048
     Dates: start: 20090216, end: 20090522

REACTIONS (2)
  - ARTERIAL DISORDER [None]
  - DEATH [None]
